FAERS Safety Report 5688087-X (Version None)
Quarter: 2008Q1

REPORT INFORMATION
  Report Type: 
  Country: None (occurrence: None)
  Receive Date: 20080327
  Receipt Date: 20080314
  Transmission Date: 20080703
  Serious: Yes (Hospitalization)
  Sender: FDA-Public Use
  Company Number: 2008-00901

PATIENT
  Age: 49 Year
  Sex: Male
  Weight: 125.5 kg

DRUGS (19)
  1. VELCADE [Suspect]
     Indication: MANTLE CELL LYMPHOMA
  2. RITUXIMAB              (RITUXIMAB) INJECTION , 375MG/M2 [Suspect]
     Indication: MANTLE CELL LYMPHOMA
     Route: 042
  3. CYCLOPHOSPHAMIDE [Suspect]
     Indication: MANTLE CELL LYMPHOMA
  4. VINCRISTINE [Suspect]
     Indication: MANTLE CELL LYMPHOMA
     Route: 042
  5. DOXORUBICIN HCL [Suspect]
     Indication: MANTLE CELL LYMPHOMA
     Route: 048
  6. DEXAMETHASONE TAB [Suspect]
     Indication: MANTLE CELL LYMPHOMA
     Route: 048
  7. METHOTREXATE [Suspect]
     Indication: MANTLE CELL LYMPHOMA
     Route: 042
  8. CYTARABINE [Suspect]
     Indication: MANTLE CELL LYMPHOMA
     Route: 042
  9. ATIVAN [Concomitant]
  10. CIPRO [Concomitant]
  11. DARVON [Concomitant]
  12. NEUPOGEN [Concomitant]
  13. DECONGESTANT [Concomitant]
  14. NEXIUM [Concomitant]
  15. NYSTATIN [Concomitant]
  16. SENOKOT [Suspect]
  17. VALTREX [Concomitant]
  18. ZOFRAN [Concomitant]
  19. HEPARIN LOCK-FLUSH [Concomitant]

REACTIONS (5)
  - CELLULITIS [None]
  - HAEMATOCRIT DECREASED [None]
  - HAEMOGLOBIN DECREASED [None]
  - PLATELET COUNT DECREASED [None]
  - SKIN INJURY [None]
